FAERS Safety Report 15089844 (Version 1)
Quarter: 2018Q2

REPORT INFORMATION
  Report Type: Spontaneous
  Country: US (occurrence: US)
  Receive Date: 20180629
  Receipt Date: 20180629
  Transmission Date: 20180711
  Serious: Yes (Other)
  Sender: FDA-Public Use
  Company Number: PHEH2018US026656

PATIENT
  Sex: Female
  Weight: 61.23 kg

DRUGS (1)
  1. GILENYA [Suspect]
     Active Substance: FINGOLIMOD HYDROCHLORIDE
     Indication: PRODUCT USED FOR UNKNOWN INDICATION
     Dosage: 0.5 MG, QOD (EVERY 48 HRS)
     Route: 048

REACTIONS (4)
  - Abortion spontaneous [Unknown]
  - Intentional product misuse [Unknown]
  - Maternal exposure timing unspecified [Unknown]
  - Prescribed underdose [Unknown]
